FAERS Safety Report 4927278-X (Version None)
Quarter: 2006Q1

REPORT INFORMATION
  Report Type: 
  Country: None (occurrence: None)
  Receive Date: 20060228
  Receipt Date: 20050427
  Transmission Date: 20060701
  Serious: No
  Sender: FDA-Public Use
  Company Number: US-GLAXOSMITHKLINE-A0556028A

PATIENT
  Age: 26 Year
  Sex: Male
  Weight: 70.5 kg

DRUGS (2)
  1. IMITREX [Suspect]
     Indication: MIGRAINE
     Dosage: 6MGML MONTHLY
     Route: 058
  2. NO CONCURRENT MEDICATION [Concomitant]

REACTIONS (1)
  - GENITAL RASH [None]
